FAERS Safety Report 9458190 (Version 2)
Quarter: 2013Q4

REPORT INFORMATION
  Report Type: Spontaneous
  Country: CA (occurrence: CA)
  Receive Date: 20130814
  Receipt Date: 20131204
  Transmission Date: 20140711
  Serious: Yes (Other)
  Sender: FDA-Public Use
  Company Number: CA-ELI_LILLY_AND_COMPANY-CA201308004089

PATIENT
  Age: 12 Year
  Sex: Male
  Weight: 49.89 kg

DRUGS (3)
  1. STRATTERA [Suspect]
     Indication: ATTENTION DEFICIT/HYPERACTIVITY DISORDER
     Dosage: 25 MG, QD
     Route: 048
     Dates: start: 20121231
  2. STRATTERA [Suspect]
     Dosage: 40 MG, QD
     Route: 048
  3. STRATTERA [Suspect]
     Dosage: 60 MG, QD
     Route: 048
     Dates: end: 20130208

REACTIONS (8)
  - Intentional self-injury [Unknown]
  - Anger [Unknown]
  - Crying [Unknown]
  - Social avoidant behaviour [Unknown]
  - Decreased appetite [Unknown]
  - Depressed mood [Unknown]
  - Depression [Unknown]
  - Mood altered [Unknown]
